FAERS Safety Report 17694204 (Version 4)
Quarter: 2020Q2

REPORT INFORMATION
  Report Type: Report from Study
  Country: US (occurrence: US)
  Receive Date: 20200422
  Receipt Date: 20200603
  Transmission Date: 20200714
  Serious: Yes (Other)
  Sender: FDA-Public Use
  Company Number: US-ACTELION-A-US2019-199369

PATIENT
  Age: 42 Year
  Sex: Female
  Weight: 88.44 kg

DRUGS (7)
  1. OPSUMIT [Suspect]
     Active Substance: MACITENTAN
     Indication: PULMONARY ARTERIAL HYPERTENSION
     Dosage: 10 MG, QD
     Route: 048
  2. UPTRAVI [Suspect]
     Active Substance: SELEXIPAG
     Indication: PULMONARY ARTERIAL HYPERTENSION
     Dosage: 800 MCG, BID
     Route: 048
  3. UPTRAVI [Suspect]
     Active Substance: SELEXIPAG
     Dosage: 800 MCG IN AM, 600 MCG IN PM
     Route: 048
  4. UPTRAVI [Suspect]
     Active Substance: SELEXIPAG
     Dosage: 600 MCG, BID
     Route: 048
  5. UPTRAVI [Suspect]
     Active Substance: SELEXIPAG
     Dosage: 400 MCG, BID
     Route: 048
     Dates: start: 20191211
  6. REVATIO [Concomitant]
     Active Substance: SILDENAFIL CITRATE
  7. UPTRAVI [Suspect]
     Active Substance: SELEXIPAG
     Dosage: 200 MCG, BID
     Route: 048

REACTIONS (42)
  - Pericardial effusion [Unknown]
  - Anxiety [Unknown]
  - Constipation [Unknown]
  - Hepatic failure [Unknown]
  - Wheezing [Unknown]
  - Sinus congestion [Unknown]
  - Fatigue [Recovering/Resolving]
  - Type 2 diabetes mellitus [Unknown]
  - Dizziness [Not Recovered/Not Resolved]
  - Condition aggravated [Unknown]
  - Dyspnoea at rest [Recovering/Resolving]
  - Pain [Unknown]
  - Malaise [Recovering/Resolving]
  - Stress [Unknown]
  - Tearfulness [Unknown]
  - Dyspnoea [Not Recovered/Not Resolved]
  - Hordeolum [Unknown]
  - Middle insomnia [Unknown]
  - Adjustment disorder [Not Recovered/Not Resolved]
  - Agitation [Not Recovered/Not Resolved]
  - Vision blurred [Not Recovered/Not Resolved]
  - Arthralgia [Recovered/Resolved]
  - Cough [Unknown]
  - Tooth infection [Unknown]
  - Breath sounds abnormal [Unknown]
  - Back pain [Recovered/Resolved]
  - Oedema peripheral [Unknown]
  - Rhinorrhoea [Unknown]
  - Productive cough [Not Recovered/Not Resolved]
  - Palpitations [Unknown]
  - Dyspepsia [Unknown]
  - End stage renal disease [Unknown]
  - Oxygen saturation decreased [Unknown]
  - Cardiac discomfort [Recovered/Resolved]
  - Cardiac murmur [Unknown]
  - Weight increased [Unknown]
  - Dyspnoea exertional [Recovering/Resolving]
  - Diarrhoea [Unknown]
  - Weight decreased [Unknown]
  - Cyanosis [Unknown]
  - Headache [Unknown]
  - Blood pressure abnormal [Unknown]

NARRATIVE: CASE EVENT DATE: 20191211
